FAERS Safety Report 13351904 (Version 1)
Quarter: 2017Q1

REPORT INFORMATION
  Report Type: Spontaneous
  Country: US (occurrence: US)
  Receive Date: 20170320
  Receipt Date: 20170320
  Transmission Date: 20170429
  Serious: No
  Sender: FDA-Public Use
  Company Number: US-SA-2016SA178633

PATIENT
  Age: 88 Year
  Sex: Female

DRUGS (1)
  1. NASACORT ALLERGY 24HR [Suspect]
     Active Substance: TRIAMCINOLONE ACETONIDE
     Indication: MULTIPLE ALLERGIES
     Route: 065
     Dates: start: 20160919

REACTIONS (7)
  - Dyspnoea [Unknown]
  - Insomnia [Unknown]
  - Dry mouth [Unknown]
  - Mucosal dryness [Unknown]
  - Nasal dryness [Unknown]
  - Drug effect increased [Unknown]
  - Feeling abnormal [Unknown]
